FAERS Safety Report 9855037 (Version 1)
Quarter: 2013Q4

REPORT INFORMATION
  Report Type: Spontaneous
  Country: US (occurrence: None)
  Receive Date: 20131226
  Receipt Date: 20131226
  Transmission Date: 20140711
  Serious: Yes (Hospitalization)
  Sender: FDA-Public Use
  Company Number: PHEH2013US016139

PATIENT
  Age: 70 Year
  Sex: Female

DRUGS (2)
  1. AFINITOR (RAD) UNKNOWN [Suspect]
     Indication: BREAST CANCER
     Route: 048
     Dates: start: 20130529, end: 20130729
  2. EXEMESTANE (EXEMESTANE) [Concomitant]

REACTIONS (1)
  - Renal failure [None]
